FAERS Safety Report 5405405-8 (Version None)
Quarter: 2007Q3

REPORT INFORMATION
  Report Type: 
  Country: None (occurrence: None)
  Receive Date: 20070803
  Receipt Date: 20070719
  Transmission Date: 20080115
  Serious: Yes (Hospitalization)
  Sender: FDA-Public Use
  Company Number: AU-BOEHRINGER INGELHEIM PHARMACEUTICALS, INC.-2007-DE-04234GD

PATIENT
  Age: 66 Year
  Sex: Male

DRUGS (10)
  1. CLONIDINE [Suspect]
     Indication: LOCAL ANAESTHESIA
     Dosage: 1/2 AMPOULE
  2. ROPIVACAINE [Suspect]
     Indication: LOCAL ANAESTHESIA
     Dosage: 5 ML OF 1% ROPIVACAINE
  3. HYALURONIDASE [Suspect]
     Indication: LOCAL ANAESTHESIA
  4. POVIDONE IODINE [Concomitant]
     Indication: PREMEDICATION
     Dosage: HALF-STRENGTH
  5. GENTAMICIN [Concomitant]
  6. DEXAMETHASONE 0.5MG TAB [Concomitant]
  7. CHLORAMPHENICOL [Concomitant]
     Route: 061
  8. PREDNISOLONE ACETATE [Concomitant]
     Dosage: 1%
  9. PHENYLEPHRINE HYDROCHLORIDE [Concomitant]
     Dosage: 0.12 %
  10. BENZALKONIUM CHLORIDE [Concomitant]
     Dosage: 0.004 %

REACTIONS (1)
  - CELLULITIS ORBITAL [None]
